FAERS Safety Report 5655743-9 (Version None)
Quarter: 2008Q1

REPORT INFORMATION
  Report Type: 
  Country: None (occurrence: None)
  Receive Date: 20080307
  Receipt Date: 20080225
  Transmission Date: 20080703
  Serious: Yes (Other)
  Sender: FDA-Public Use
  Company Number: US-PFIZER INC-2008017520

PATIENT
  Sex: Female
  Weight: 46.818 kg

DRUGS (7)
  1. DILANTIN [Suspect]
     Indication: CONVULSION
     Dates: start: 19530801, end: 20080224
  2. DILANTIN [Suspect]
     Indication: CONVULSION
     Dates: start: 20080224
  3. PHENOBARBITAL TAB [Concomitant]
  4. THEOPHYLLINE [Concomitant]
  5. PREMARIN [Concomitant]
  6. PREVACID [Concomitant]
  7. BUSPAR [Concomitant]

REACTIONS (3)
  - ASTHMA [None]
  - CORONARY ARTERY DISEASE [None]
  - SOMNOLENCE [None]
